FAERS Safety Report 20429288 (Version 5)
Quarter: 2022Q3

REPORT INFORMATION
  Report Type: Spontaneous
  Country: JP (occurrence: JP)
  Receive Date: 20220204
  Receipt Date: 20220715
  Transmission Date: 20221027
  Serious: Yes (Death, Other)
  Sender: FDA-Public Use
  Company Number: JP-GSKJP-JP2022JPN018108AA

PATIENT

DRUGS (3)
  1. SOTROVIMAB [Suspect]
     Active Substance: SOTROVIMAB
     Indication: COVID-19
     Dosage: 500 MG/100 ML/30 MINUTES, QD
     Dates: start: 20220126, end: 20220126
  2. PIPERACILLIN AND TAZOBACTAM [Concomitant]
     Active Substance: PIPERACILLIN SODIUM\TAZOBACTAM SODIUM
     Indication: Pneumonia bacterial
     Dosage: UNK
     Dates: start: 20220109, end: 20220114
  3. SULBACTAM + AMPICILLIN I.M [Concomitant]
     Indication: Pneumonia bacterial
     Dosage: UNK
     Dates: start: 20220115, end: 20220118

REACTIONS (3)
  - Arrhythmia [Fatal]
  - Ventricular fibrillation [Fatal]
  - Pyrexia [Unknown]

NARRATIVE: CASE EVENT DATE: 20220126
